FAERS Safety Report 9060597 (Version 1)
Quarter: 2013Q1

REPORT INFORMATION
  Report Type: Spontaneous
  Country: FR (occurrence: FR)
  Receive Date: 20130212
  Receipt Date: 20130212
  Transmission Date: 20140127
  Serious: Yes (Other)
  Sender: FDA-Public Use
  Company Number: FR-VERTEX PHARMACEUTICALS INC.-2013-001917

PATIENT
  Sex: Male

DRUGS (5)
  1. INCIVO [Suspect]
     Indication: HEPATITIS C VIRUS TEST POSITIVE
     Route: 065
     Dates: start: 201205, end: 201209
  2. COPEGUS [Suspect]
     Indication: HEPATITIS C VIRUS TEST POSITIVE
     Dosage: UNK
     Route: 065
     Dates: start: 201205, end: 201209
  3. PEGASYS [Suspect]
     Indication: HEPATITIS C VIRUS TEST POSITIVE
     Dosage: UNK
     Route: 065
     Dates: start: 201205, end: 201209
  4. CELLCEPT [Concomitant]
     Indication: ORGAN TRANSPLANT
     Dosage: UNK
     Dates: start: 200911
  5. ADVAGRAF [Concomitant]
     Indication: ORGAN TRANSPLANT
     Dosage: UNK
     Dates: start: 200911

REACTIONS (4)
  - General physical health deterioration [Unknown]
  - Liver disorder [Unknown]
  - Drug intolerance [Unknown]
  - Ascites [Unknown]
